FAERS Safety Report 4809962-1 (Version None)
Quarter: 2005Q4

REPORT INFORMATION
  Report Type: 
  Country: None (occurrence: None)
  Receive Date: 20051024
  Receipt Date: 20051013
  Transmission Date: 20060501
  Serious: No
  Sender: FDA-Public Use
  Company Number: 2005-03894

PATIENT
  Age: 37 Year
  Sex: Female

DRUGS (5)
  1. TRELSTAR DEPOT [Suspect]
     Indication: DISEASE RECURRENCE
     Dosage: 3.75 MG, SINGLE, INTRAMUSCULAR
     Route: 030
     Dates: start: 20050805, end: 20050805
  2. TRELSTAR DEPOT [Suspect]
     Indication: ENDOMETRIOSIS
     Dosage: 3.75 MG, SINGLE, INTRAMUSCULAR
     Route: 030
     Dates: start: 20050805, end: 20050805
  3. TRELSTAR DEPOT [Suspect]
     Indication: UTERINE POLYP
     Dosage: 3.75 MG, SINGLE, INTRAMUSCULAR
     Route: 030
     Dates: start: 20050805, end: 20050805
  4. ARIFON [Concomitant]
  5. ENALAPRIL MALEATE [Concomitant]

REACTIONS (1)
  - METRORRHAGIA [None]
